FAERS Safety Report 14335410 (Version 2)
Quarter: 2018Q1

REPORT INFORMATION
  Report Type: Spontaneous
  Country: US (occurrence: US)
  Receive Date: 20171229
  Receipt Date: 20180117
  Transmission Date: 20180509
  Serious: No
  Sender: FDA-Public Use
  Company Number: PHEH2017US041438

PATIENT
  Age: 74 Year
  Sex: Female

DRUGS (1)
  1. CLOBETASOL PROPIONATE. [Suspect]
     Active Substance: CLOBETASOL PROPIONATE
     Indication: MYCOSIS FUNGOIDES
     Dosage: UNK UNK, BID
     Route: 065
     Dates: start: 20171203

REACTIONS (2)
  - Product quality issue [Unknown]
  - Rash [Unknown]

NARRATIVE: CASE EVENT DATE: 20171218
